FAERS Safety Report 9522482 (Version 1)
Quarter: 2013Q3

REPORT INFORMATION
  Report Type: Spontaneous
  Country: US (occurrence: US)
  Receive Date: 20130913
  Receipt Date: 20130913
  Transmission Date: 20140515
  Serious: Yes (Other)
  Sender: FDA-Public Use
  Company Number: US-PFIZER INC-2013259478

PATIENT
  Age: 23 Year
  Sex: Male

DRUGS (2)
  1. TYGACIL [Suspect]
     Dosage: UNK
     Dates: end: 20130905
  2. NEURONTIN [Concomitant]
     Dosage: UNK

REACTIONS (2)
  - Pancreatitis [Unknown]
  - Abdominal pain [Unknown]
